FAERS Safety Report 19422299 (Version 1)
Quarter: 2021Q2

REPORT INFORMATION
  Report Type: Spontaneous
  Country: US (occurrence: US)
  Receive Date: 20210616
  Receipt Date: 20210616
  Transmission Date: 20210717
  Serious: Yes (Hospitalization)
  Sender: FDA-Public Use
  Company Number: None

PATIENT
  Sex: Male
  Weight: 75 kg

DRUGS (1)
  1. DECITABINE (5?AZA?2^?DEOXYCYTIDINE) [Suspect]
     Active Substance: DECITABINE
     Dates: end: 20210528

REACTIONS (3)
  - Staphylococcal infection [None]
  - Febrile neutropenia [None]
  - Bacteraemia [None]

NARRATIVE: CASE EVENT DATE: 20210531
